FAERS Safety Report 22280170 (Version 1)
Quarter: 2023Q2

REPORT INFORMATION
  Report Type: Spontaneous
  Country: JP (occurrence: JP)
  Receive Date: 20230503
  Receipt Date: 20230503
  Transmission Date: 20230721
  Serious: Yes (Hospitalization, Other)
  Sender: FDA-Public Use
  Company Number: JP-PFIZER INC-PV202300074799

PATIENT
  Age: 56 Year
  Sex: Female
  Weight: 50.5 kg

DRUGS (3)
  1. ESTROGENS, CONJUGATED [Suspect]
     Active Substance: ESTROGENS, CONJUGATED
     Indication: Hormone replacement therapy
     Dosage: 0.625 MG, DAILY, 25 DAYS/MONTH
     Route: 048
  2. ESTROGENS, CONJUGATED [Suspect]
     Active Substance: ESTROGENS, CONJUGATED
     Dosage: 0.3125 MG, DAILY, 25 DAYS/MONTH
     Route: 048
  3. DYDROGESTERONE [Suspect]
     Active Substance: DYDROGESTERONE
     Indication: Hormone replacement therapy
     Dosage: 5 MG, DAILY, 12 DAYS/MONTH
     Route: 048

REACTIONS (2)
  - Uterine polyp [Recovered/Resolved]
  - Off label use [Recovered/Resolved]
